FAERS Safety Report 18936131 (Version 2)
Quarter: 2021Q1

REPORT INFORMATION
  Report Type: Spontaneous
  Country: JP (occurrence: JP)
  Receive Date: 20210224
  Receipt Date: 20210225
  Transmission Date: 20210420
  Serious: Yes (Death, Life-Threatening, Hospitalization, Other)
  Sender: FDA-Public Use
  Company Number: JP-PFIZER INC-2021180743

PATIENT
  Age: 69 Year
  Sex: Male

DRUGS (21)
  1. ETOPOSIDE. [Suspect]
     Active Substance: ETOPOSIDE
     Dosage: UNK
  2. METHYLCOBALAMIN. [Concomitant]
     Active Substance: METHYLCOBALAMIN
     Dosage: UNK
  3. FUROSEMIDE. [Suspect]
     Active Substance: FUROSEMIDE
     Dosage: UNK
  4. SOLU?MEDROL [Suspect]
     Active Substance: METHYLPREDNISOLONE SODIUM SUCCINATE
     Dosage: UNK
  5. CUBICIN [Suspect]
     Active Substance: DAPTOMYCIN
     Dosage: UNK
  6. THALIDOMIDE [Suspect]
     Active Substance: THALIDOMIDE
     Dosage: UNK
  7. INSULIN HUMAN [Suspect]
     Active Substance: INSULIN HUMAN
     Dosage: UNK
  8. ALFACALCIDOL [Concomitant]
     Active Substance: ALFACALCIDOL
     Dosage: UNK
  9. ACYCLOVIR SODIUM. [Concomitant]
     Active Substance: ACYCLOVIR SODIUM
     Dosage: UNK
  10. CALCIUM POLYSTYRENE SULFONATE [Concomitant]
     Active Substance: CALCIUM POLYSTYRENE SULFONATE
     Dosage: UNK
  11. FARYDAK [Suspect]
     Active Substance: PANOBINOSTAT
     Dosage: UNK
  12. SULFAMETHOXAZOLE/TRIMETHOPRIM [Concomitant]
     Active Substance: SULFAMETHOXAZOLE\TRIMETHOPRIM
     Dosage: UNK
  13. D?ALPHA TOCOPHEROL [Concomitant]
     Active Substance: .ALPHA.-TOCOPHEROL, D-
     Dosage: UNK
  14. HUMAN RED BLOOD CELLS [Concomitant]
     Active Substance: HUMAN RED BLOOD CELL
  15. ALPRAZOLAM. [Concomitant]
     Active Substance: ALPRAZOLAM
     Dosage: UNK
  16. CISPLATIN. [Suspect]
     Active Substance: CISPLATIN
     Dosage: UNK
  17. DECADRON [Suspect]
     Active Substance: DEXAMETHASONE
     Dosage: UNK
  18. VELCADE [Suspect]
     Active Substance: BORTEZOMIB
     Dosage: UNK
  19. CYCLOPHOSPHAMIDE. [Suspect]
     Active Substance: CYCLOPHOSPHAMIDE
     Dosage: UNK
  20. TOCOPHERYL NICOTINATE [Concomitant]
     Active Substance: TOCOPHERYL NICOTINATE, D-.ALPHA.
     Dosage: UNK
  21. CALCIUM ASPARTATE [Concomitant]
     Active Substance: CALCIUM ASPARTATE
     Dosage: UNK

REACTIONS (14)
  - Renal impairment [Fatal]
  - Pneumonia [Fatal]
  - Constipation [Unknown]
  - Thirst [Unknown]
  - Sinus arrest [Fatal]
  - Blood creatinine increased [Unknown]
  - Hepatic function abnormal [Unknown]
  - Diabetes mellitus [Fatal]
  - Plasma cell myeloma [Fatal]
  - Nausea [Unknown]
  - Enterococcal infection [Fatal]
  - Pyrexia [Unknown]
  - Blood lactate dehydrogenase increased [Unknown]
  - Blood potassium decreased [Unknown]

NARRATIVE: CASE EVENT DATE: 20151006
